FAERS Safety Report 11422196 (Version 1)
Quarter: 2015Q3

REPORT INFORMATION
  Report Type: Spontaneous
  Country: DK (occurrence: None)
  Receive Date: 20150825
  Receipt Date: 20150825
  Transmission Date: 20151125
  Serious: Yes (Other)
  Sender: FDA-Public Use
  Company Number: 2015FE02803

PATIENT
  Age: 69 Year
  Sex: Male
  Weight: 74 kg

DRUGS (2)
  1. FIRMAGON [Suspect]
     Active Substance: DEGARELIX ACETATE
     Indication: PROSTATE CANCER
     Route: 058
     Dates: start: 20120605
  2. HJERTEMAGNYL /00002701/ (ACETYLSALICYLIC ACID) [Concomitant]

REACTIONS (2)
  - Quadriplegia [None]
  - Pain in extremity [None]

NARRATIVE: CASE EVENT DATE: 20150728
